FAERS Safety Report 10390185 (Version 2)
Quarter: 2014Q3

REPORT INFORMATION
  Report Type: Spontaneous
  Country: BR (occurrence: BR)
  Receive Date: 20140818
  Receipt Date: 20140911
  Transmission Date: 20150326
  Serious: Yes (Hospitalization)
  Sender: FDA-Public Use
  Company Number: BR-PFIZER INC-2014225551

PATIENT
  Age: 73 Year
  Sex: Male
  Weight: 62 kg

DRUGS (4)
  1. CREON [Concomitant]
     Active Substance: PANCRELIPASE AMYLASE\PANCRELIPASE LIPASE\PANCRELIPASE PROTEASE
     Indication: PROPHYLAXIS
     Dosage: 75 MG, 3 TABLETS OF 25MG A DAY
     Dates: start: 2011
  2. DETRUSITOL LA [Suspect]
     Active Substance: TOLTERODINE TARTRATE
     Dosage: UNK
     Route: 048
  3. ALPRAZOLAM. [Concomitant]
     Active Substance: ALPRAZOLAM
     Indication: INSOMNIA
     Dosage: 0.5 MG, HALF TABLET OF 1MG WHEN HE HAS INSOMNIA
  4. REVANGE [Concomitant]
     Indication: PAIN
     Dosage: 1 TABLET, 4X/DAY (EVERY 6 HOURS)
     Dates: start: 201404

REACTIONS (3)
  - Osteoarthritis [Unknown]
  - Arthritis [Unknown]
  - Arthralgia [Not Recovered/Not Resolved]
